FAERS Safety Report 26184342 (Version 1)
Quarter: 2025Q4

REPORT INFORMATION
  Report Type: Spontaneous
  Country: GB (occurrence: GB)
  Receive Date: 20251222
  Receipt Date: 20251222
  Transmission Date: 20260117
  Serious: Yes (Other)
  Sender: TEVA
  Company Number: None

PATIENT
  Age: 51 Year
  Sex: Female
  Weight: 53 kg

DRUGS (7)
  1. MIRTAZAPINE [Suspect]
     Active Substance: MIRTAZAPINE
     Indication: Product used for unknown indication
     Route: 065
  2. UTROGESTAN [Concomitant]
     Active Substance: PROGESTERONE
     Indication: Product used for unknown indication
     Dosage: DAILY DOSE: 1 DOSAGE FORM ?AT NIGHT
     Dates: start: 20240905
  3. ESTRADIOL [Concomitant]
     Active Substance: ESTRADIOL
     Indication: Product used for unknown indication
     Dosage: APPLY TWICE WEEKLY
     Dates: start: 20240905
  4. ALBUTEROL [Concomitant]
     Active Substance: ALBUTEROL
     Indication: Product used for unknown indication
     Dosage: INHALE 2 DOSES AS NEEDED.LOWER CARBON FOOTPRINT
     Dates: start: 20240701
  5. SERTRALINE [Concomitant]
     Active Substance: SERTRALINE HYDROCHLORIDE
     Indication: Product used for unknown indication
     Dosage: DAILY DOSE: 1 DOSAGE FORM
     Dates: start: 20250603
  6. MEBEVERINE HYDROCHLORIDE [Concomitant]
     Active Substance: MEBEVERINE HYDROCHLORIDE
     Indication: Product used for unknown indication
     Dosage: DAILY DOSE: 3 DOSAGE FORM
     Dates: start: 20250217
  7. BECLOMETHASONE DIPROPIONATE\FORMOTEROL FUMARATE [Concomitant]
     Active Substance: BECLOMETHASONE DIPROPIONATE\FORMOTEROL FUMARATE
     Indication: Product used for unknown indication
     Dosage: DAILY DOSE: 2 DOSAGE FORM
     Dates: start: 20240701

REACTIONS (2)
  - Dizziness [Recovered/Resolved]
  - Restless legs syndrome [Recovered/Resolved]
